FAERS Safety Report 8214786-1 (Version None)
Quarter: 2012Q1

REPORT INFORMATION
  Report Type: 
  Country: None (occurrence: None)
  Receive Date: 20120316
  Receipt Date: 20120306
  Transmission Date: 20120608
  Serious: Yes (Other)
  Sender: FDA-Public Use
  Company Number: GB-BRISTOL-MYERS SQUIBB COMPANY-16440935

PATIENT
  Age: 75 Year
  Sex: Male

DRUGS (11)
  1. WARFARIN SODIUM [Suspect]
  2. PREDNISOLONE [Suspect]
  3. VERAPAMIL HYDROCHLORIDE [Suspect]
  4. ATORVASTATIN [Suspect]
  5. CYSTEINE HYDROCHLORIDE [Suspect]
  6. RAMIPRIL [Suspect]
  7. FUROSEMIDE [Suspect]
  8. ALBUTEROL [Suspect]
  9. CARBOCISTEINE [Concomitant]
  10. METFORMIN HCL [Suspect]
     Route: 048
  11. FORMOTEROL FUMARATE [Suspect]

REACTIONS (1)
  - HALLUCINATION [None]
